FAERS Safety Report 8709316 (Version 3)
Quarter: 2014Q1

REPORT INFORMATION
  Report Type: Spontaneous
  Country: US (occurrence: US)
  Receive Date: 20120806
  Receipt Date: 20140130
  Transmission Date: 20141002
  Serious: Yes (Hospitalization, Other)
  Sender: FDA-Public Use
  Company Number: US-BAYER-2012-076198

PATIENT
  Age: 24 Year
  Sex: Female
  Weight: 86.17 kg

DRUGS (6)
  1. MIRENA [Suspect]
     Indication: CONTRACEPTION
     Dosage: 20 MCG/24HR, CONT
     Route: 015
     Dates: start: 20100126, end: 20120119
  2. NAPROXEN [Concomitant]
     Indication: MIGRAINE
     Dosage: UNK
     Dates: start: 2011
  3. NAPROXEN [Concomitant]
     Indication: ARTHRALGIA
  4. MOTRIN [Concomitant]
  5. LEVOTHYROXINE [Concomitant]
     Indication: HYPOTHYROIDISM
  6. VICODIN [Concomitant]

REACTIONS (13)
  - Embedded device [None]
  - Pain [None]
  - Discomfort [None]
  - Menstruation irregular [None]
  - Abdominal pain [None]
  - Complication of device removal [None]
  - Device breakage [None]
  - Injury [None]
  - Emotional disorder [None]
  - Abortion spontaneous [None]
  - Depression [None]
  - Anxiety [None]
  - Polycystic ovaries [None]
